FAERS Safety Report 19891576 (Version 2)
Quarter: 2021Q4

REPORT INFORMATION
  Report Type: Spontaneous
  Country: US (occurrence: US)
  Receive Date: 20210928
  Receipt Date: 20211004
  Transmission Date: 20220304
  Serious: Yes (Life-Threatening, Hospitalization, Other)
  Sender: FDA-Public Use
  Company Number: US-PFIZER INC-202101240911

PATIENT
  Age: 15 Year
  Sex: Female

DRUGS (2)
  1. SERTRALINE HYDROCHLORIDE [Interacting]
     Active Substance: SERTRALINE HYDROCHLORIDE
     Dosage: UNK
  2. BUPROPION [Interacting]
     Active Substance: BUPROPION
     Dosage: UNK

REACTIONS (8)
  - Suicide attempt [Unknown]
  - Intentional overdose [Recovering/Resolving]
  - Drug interaction [Recovering/Resolving]
  - Generalised tonic-clonic seizure [Recovering/Resolving]
  - Metabolic encephalopathy [Recovering/Resolving]
  - Areflexia [Recovering/Resolving]
  - Anterograde amnesia [Recovering/Resolving]
  - Myoclonus [Recovering/Resolving]
